FAERS Safety Report 24006823 (Version 1)
Quarter: 2024Q2

REPORT INFORMATION
  Report Type: Other
  Country: US (occurrence: QA)
  Receive Date: 20240624
  Receipt Date: 20240624
  Transmission Date: 20240716
  Serious: Yes (Hospitalization, Disabling)
  Sender: FDA-Public Use
  Company Number: QA-Saptalis Pharmaceuticals LLC-2158481

PATIENT
  Age: 30 Year
  Sex: Female
  Weight: 60 kg

DRUGS (1)
  1. LIKMEZ [Suspect]
     Active Substance: METRONIDAZOLE
     Indication: Gastroenteritis

REACTIONS (2)
  - Central vision loss [Not Recovered/Not Resolved]
  - Optic neuritis [Not Recovered/Not Resolved]
